FAERS Safety Report 11837041 (Version 2)
Quarter: 2015Q4

REPORT INFORMATION
  Report Type: Spontaneous
  Country: US (occurrence: US)
  Receive Date: 20151215
  Receipt Date: 20151215
  Transmission Date: 20160305
  Serious: No
  Sender: FDA-Public Use
  Company Number: GXBR2015US000997

PATIENT
  Age: 68 Year
  Sex: Male
  Weight: 70.3 kg

DRUGS (2)
  1. FLUOCINOLONE ACETONIDE. [Suspect]
     Active Substance: FLUOCINOLONE ACETONIDE
     Indication: ECZEMA
     Dosage: 1 DF, TID
     Route: 061
     Dates: start: 20150301, end: 20150303
  2. CLOBETASOL [Concomitant]
     Active Substance: CLOBETASOL
     Indication: ECZEMA
     Dosage: UNK DF, UNK
     Route: 061

REACTIONS (2)
  - Joint swelling [Not Recovered/Not Resolved]
  - Erythema [Recovered/Resolved]

NARRATIVE: CASE EVENT DATE: 20150303
